FAERS Safety Report 6879635-2 (Version None)
Quarter: 2010Q3

REPORT INFORMATION
  Report Type: 
  Country: None (occurrence: None)
  Receive Date: 20100728
  Receipt Date: 20090706
  Transmission Date: 20110219
  Serious: No
  Sender: FDA-Public Use
  Company Number: US-MYLANLABS-2009S1011083

PATIENT
  Age: 63 Year
  Sex: Female

DRUGS (20)
  1. CLONIDINE HYDROCHLORIDE [Suspect]
     Indication: BLOOD PRESSURE INCREASED
     Route: 048
     Dates: start: 20080901
  2. CLONIDINE HYDROCHLORIDE [Suspect]
     Route: 048
  3. CLONIDINE HYDROCHLORIDE [Suspect]
     Route: 048
     Dates: end: 20090628
  4. CLONIDINE HYDROCHLORIDE [Suspect]
     Route: 048
     Dates: start: 20090629
  5. SYNTHROID [Concomitant]
  6. NEXIUM [Concomitant]
  7. ATENOLOL [Concomitant]
  8. HYDROCHLOROTHIAZIDE W/VALSARTAN [Concomitant]
  9. HYDROCHLOROTHIAZIDE [Concomitant]
  10. ISOSORBIDE [Concomitant]
  11. NIFEDIPINE [Concomitant]
  12. TEKTURNA /01763601/ [Concomitant]
  13. PRAVASTATIN [Concomitant]
  14. CALCIUM [Concomitant]
  15. VITAMIN D [Concomitant]
  16. MAGNESIUM [Concomitant]
  17. OMEGA 3 /00931501/ [Concomitant]
  18. VIT B 12 [Concomitant]
  19. STOOL SOFTENER [Concomitant]
  20. ACTONEL [Concomitant]

REACTIONS (5)
  - DRY MOUTH [None]
  - DRY THROAT [None]
  - DYSPHONIA [None]
  - GASTROOESOPHAGEAL REFLUX DISEASE [None]
  - SOMNOLENCE [None]
